FAERS Safety Report 18947741 (Version 1)
Quarter: 2021Q1

REPORT INFORMATION
  Report Type: Spontaneous
  Country: IT (occurrence: IT)
  Receive Date: 20210226
  Receipt Date: 20210226
  Transmission Date: 20210420
  Serious: Yes (Other)
  Sender: FDA-Public Use
  Company Number: IT-JAZZ-2021-IT-002990

PATIENT
  Age: 63 Year
  Sex: Female

DRUGS (2)
  1. VYXEOS [Suspect]
     Active Substance: CYTARABINE\DAUNORUBICIN
     Dosage: SECOND CONSOLIDATION CYCLE
     Dates: start: 201910
  2. VYXEOS [Suspect]
     Active Substance: CYTARABINE\DAUNORUBICIN
     Indication: ACUTE MYELOID LEUKAEMIA
     Dosage: FIRST INDUCTION CYCLE
     Dates: start: 201907

REACTIONS (4)
  - Bacterial infection [Recovered/Resolved]
  - Rash [Recovered/Resolved]
  - Venous thrombosis limb [Recovered/Resolved]
  - Pyrexia [Recovered/Resolved]

NARRATIVE: CASE EVENT DATE: 2019
